FAERS Safety Report 16287433 (Version 1)
Quarter: 2019Q2

REPORT INFORMATION
  Report Type: Spontaneous
  Country: US (occurrence: US)
  Receive Date: 20190508
  Receipt Date: 20190508
  Transmission Date: 20190711
  Serious: Yes (Other)
  Sender: FDA-Public Use
  Company Number: US-BAUSCH-BL-2019-013264

PATIENT
  Age: 60 Year
  Sex: Female

DRUGS (1)
  1. ALDARA [Suspect]
     Active Substance: IMIQUIMOD
     Indication: ACTINIC KERATOSIS
     Dosage: APPLIED TOPICALLY ON THE LOWER LIP ONCE DAILY AT NIGHT
     Route: 061
     Dates: start: 20190422, end: 20190426

REACTIONS (7)
  - Lip injury [Not Recovered/Not Resolved]
  - Product use issue [Unknown]
  - Lip swelling [Recovering/Resolving]
  - Lip haemorrhage [Not Recovered/Not Resolved]
  - Lip infection [Recovering/Resolving]
  - Scab [Not Recovered/Not Resolved]
  - Staphylococcal infection [Recovering/Resolving]

NARRATIVE: CASE EVENT DATE: 20190422
